FAERS Safety Report 4312563-5 (Version None)
Quarter: 2004Q1

REPORT INFORMATION
  Report Type: 
  Country: None (occurrence: None)
  Receive Date: 20040302
  Receipt Date: 20040105
  Transmission Date: 20041129
  Serious: No
  Sender: FDA-Public Use
  Company Number: 200410083BWH

PATIENT
  Age: 59 Year
  Sex: Male
  Weight: 88.4514 kg

DRUGS (3)
  1. LEVITRA [Suspect]
     Indication: ERECTILE DYSFUNCTION
     Dosage: 10 MG TOTAL DAILY ORAL
     Route: 048
     Dates: start: 20040102, end: 20040103
  2. VIAGRA [Concomitant]
  3. LITHIUM [Concomitant]

REACTIONS (3)
  - ERECTILE DYSFUNCTION [None]
  - FLUSHING [None]
  - HEART RATE INCREASED [None]
